FAERS Safety Report 6511613-5 (Version None)
Quarter: 2009Q4

REPORT INFORMATION
  Report Type: 
  Country: None (occurrence: None)
  Receive Date: 20091222
  Receipt Date: 20090428
  Transmission Date: 20100525
  Serious: No
  Sender: FDA-Public Use
  Company Number: US-ASTRAZENECA-2009UW10638

PATIENT
  Age: 53 Year
  Sex: Female
  Weight: 98.4 kg

DRUGS (13)
  1. CRESTOR [Suspect]
     Route: 048
     Dates: start: 20090120, end: 20090223
  2. SPIRIVA [Concomitant]
  3. ALBUTEROL [Concomitant]
  4. THEOPHYLLINE [Concomitant]
  5. ALLEGRA [Concomitant]
  6. POTASSIUM [Concomitant]
  7. LASIX [Concomitant]
  8. SPIRONOLACTONE [Concomitant]
  9. CELEBREX [Concomitant]
  10. FLONASE [Concomitant]
  11. EFFEXOR [Concomitant]
  12. NEXIUM [Concomitant]
     Route: 048
  13. SINGULAIR [Concomitant]
     Route: 048

REACTIONS (2)
  - DECREASED APPETITE [None]
  - VOMITING [None]
